FAERS Safety Report 5252214-9 (Version None)
Quarter: 2007Q1

REPORT INFORMATION
  Report Type: 
  Country: None (occurrence: None)
  Receive Date: 20070301
  Receipt Date: 20070222
  Transmission Date: 20070707
  Serious: Yes (Hospitalization, Other)
  Sender: FDA-Public Use
  Company Number: CA-JNJFOC-20070205747

PATIENT
  Age: 37 Year
  Sex: Male

DRUGS (7)
  1. DURAGESIC [Suspect]
     Indication: ABDOMINAL MASS
     Route: 062
  2. OXYPAM [Concomitant]
     Indication: SLEEP DISORDER
     Route: 065
  3. DILAUDID [Concomitant]
     Indication: BREAKTHROUGH PAIN
     Route: 065
  4. PREDNISONE [Concomitant]
     Route: 065
  5. ASPIRIN [Concomitant]
     Route: 065
  6. NORVASC [Concomitant]
     Route: 065
  7. LOSEC [Concomitant]
     Indication: ULCER
     Route: 065

REACTIONS (6)
  - GANGRENE [None]
  - HILAR LYMPHADENOPATHY [None]
  - LUNG DISORDER [None]
  - PHARMACEUTICAL PRODUCT COMPLAINT [None]
  - THROMBOSIS [None]
  - VASCULITIS [None]
